FAERS Safety Report 18716849 (Version 2)
Quarter: 2021Q1

REPORT INFORMATION
  Report Type: Other
  Country: VN (occurrence: VN)
  Receive Date: 20210108
  Receipt Date: 20210112
  Transmission Date: 20210419
  Serious: Yes (Other)
  Sender: FDA-Public Use
  Company Number: VN-ROCHE-2745488

PATIENT
  Age: 32 Year
  Sex: Male

DRUGS (2)
  1. ALTEPLASE. [Suspect]
     Active Substance: ALTEPLASE
     Indication: THROMBOLYSIS
  2. ALTEPLASE. [Suspect]
     Active Substance: ALTEPLASE
     Indication: BASILAR ARTERY OCCLUSION
     Route: 042

REACTIONS (3)
  - Brain stem infarction [Unknown]
  - Basilar artery stenosis [Recovered/Resolved]
  - Basilar artery occlusion [Recovered/Resolved]
